FAERS Safety Report 14254416 (Version 5)
Quarter: 2018Q4

REPORT INFORMATION
  Report Type: Spontaneous
  Country: DE (occurrence: DE)
  Receive Date: 20171205
  Receipt Date: 20181008
  Transmission Date: 20190204
  Serious: Yes (Hospitalization, Other)
  Sender: FDA-Public Use
  Company Number: DE-PFIZER INC-2017513756

PATIENT
  Age: 52 Year
  Sex: Female

DRUGS (13)
  1. VENLAFAXINE HCL [Suspect]
     Active Substance: VENLAFAXINE HYDROCHLORIDE
     Dosage: 150 MG, 1X/DAY
     Route: 048
     Dates: start: 20151022, end: 20151023
  2. VENLAFAXINE HCL [Suspect]
     Active Substance: VENLAFAXINE HYDROCHLORIDE
     Dosage: 112 MG, 1X/DAY
     Route: 048
     Dates: start: 20151024, end: 20151029
  3. VENLAFAXINE HCL [Suspect]
     Active Substance: VENLAFAXINE HYDROCHLORIDE
     Dosage: 75 MG, UNK
     Route: 048
     Dates: start: 20151030, end: 20151102
  4. VENLAFAXINE HCL [Suspect]
     Active Substance: VENLAFAXINE HYDROCHLORIDE
     Dosage: 37.5 MG, 1X/DAY
     Route: 048
     Dates: start: 20151003, end: 20151005
  5. DELIX (RAMIPRIL) [Concomitant]
     Active Substance: RAMIPRIL
     Dosage: 2.5 MG, UNK
     Route: 048
     Dates: start: 20150825, end: 20150910
  6. VENLAFAXINE HCL [Suspect]
     Active Substance: VENLAFAXINE HYDROCHLORIDE
     Dosage: 112 MG, 1X/DAY
     Route: 048
     Dates: start: 20151008, end: 20151021
  7. VENLAFAXINE HCL [Suspect]
     Active Substance: VENLAFAXINE HYDROCHLORIDE
     Dosage: 75 MG, 1X/DAY
     Route: 048
     Dates: start: 20151006, end: 20151007
  8. TAVOR (LORAZEPAM) [Concomitant]
     Active Substance: LORAZEPAM
     Dosage: 1DF-1.5, QD
     Route: 048
     Dates: start: 20151005, end: 20151104
  9. DELIX (RAMIPRIL) [Concomitant]
     Active Substance: RAMIPRIL
     Dosage: 1.25 MG, QD
     Route: 048
     Dates: start: 20110911, end: 20151014
  10. SEROQUEL [Concomitant]
     Active Substance: QUETIAPINE FUMARATE
     Dosage: 100 MG, AS NEEDED
     Route: 048
     Dates: start: 20150929, end: 20151021
  11. ABILIFY [Suspect]
     Active Substance: ARIPIPRAZOLE
     Dosage: 20 MG, 1X/DAY
     Route: 048
     Dates: start: 20151007
  12. DELIX (RAMIPRIL) [Concomitant]
     Active Substance: RAMIPRIL
     Dosage: 2.5 MG, QD
     Route: 048
     Dates: start: 20151015, end: 20151028
  13. DELIX (RAMIPRIL) [Concomitant]
     Active Substance: RAMIPRIL
     Dosage: 7.5 MG, QD
     Route: 048
     Dates: start: 20151029

REACTIONS (12)
  - Head discomfort [Unknown]
  - Peripheral swelling [Unknown]
  - White blood cell count decreased [Unknown]
  - Hypertensive crisis [Unknown]
  - Dyspnoea exertional [Unknown]
  - Muscle twitching [Unknown]
  - Suicidal ideation [Unknown]
  - Hypertension [Recovered/Resolved]
  - Prescribed overdose [Unknown]
  - Nasopharyngitis [Unknown]
  - Dysuria [Unknown]
  - Renal pain [Unknown]

NARRATIVE: CASE EVENT DATE: 20151007
